FAERS Safety Report 7147935-7 (Version None)
Quarter: 2010Q4

REPORT INFORMATION
  Report Type: 
  Country: None (occurrence: None)
  Receive Date: 20101209
  Receipt Date: 20101201
  Transmission Date: 20110411
  Serious: Yes (Hospitalization)
  Sender: FDA-Public Use
  Company Number: US-JNJFOC-20100708404

PATIENT
  Sex: Female
  Weight: 52.62 kg

DRUGS (17)
  1. EXTRA STRENGTH TYLENOL [Suspect]
     Indication: PAIN
     Route: 065
  2. EXTRA STRENGTH TYLENOL [Suspect]
     Route: 065
  3. EXTRA STRENGTH TYLENOL [Suspect]
     Indication: PAIN IN EXTREMITY
     Route: 065
  4. EXTRA STRENGTH TYLENOL [Suspect]
     Route: 065
  5. CARDIZEM [Concomitant]
  6. ATROVENT [Concomitant]
  7. FLOVENT [Concomitant]
  8. ASPIRIN [Concomitant]
  9. AVAPRO [Concomitant]
  10. LORAZEPAM [Concomitant]
  11. SIMVASTATIN [Concomitant]
  12. VITAMIN TAB [Concomitant]
  13. VITAMIN D [Concomitant]
  14. MIRALAX [Concomitant]
  15. NASONEX [Concomitant]
  16. MAALOX [Concomitant]
  17. NEXIUM [Concomitant]

REACTIONS (3)
  - OVERDOSE [None]
  - PANCREATITIS [None]
  - PRODUCT TASTE ABNORMAL [None]
